FAERS Safety Report 20956961 (Version 1)
Quarter: 2022Q2

REPORT INFORMATION
  Report Type: Spontaneous
  Country: US (occurrence: US)
  Receive Date: 20220614
  Receipt Date: 20220614
  Transmission Date: 20220721
  Serious: No
  Sender: FDA-Public Use
  Company Number: US-PFIZER INC-202200824699

PATIENT
  Age: 69 Year
  Sex: Female

DRUGS (13)
  1. NORVASC [Suspect]
     Active Substance: AMLODIPINE BESYLATE
     Dosage: UNK
  2. XANAX [Suspect]
     Active Substance: ALPRAZOLAM
     Dosage: UNK
  3. PROTONIX [Suspect]
     Active Substance: PANTOPRAZOLE SODIUM
     Dosage: UNK
  4. MAXZIDE [Suspect]
     Active Substance: HYDROCHLOROTHIAZIDE\TRIAMTERENE
     Dosage: UNK
  5. PLAVIX [Suspect]
     Active Substance: CLOPIDOGREL BISULFATE
     Dosage: UNK
  6. XENICAL [Suspect]
     Active Substance: ORLISTAT
     Dosage: UNK
  7. HYDROCODONE [Suspect]
     Active Substance: HYDROCODONE
     Indication: Analgesic therapy
     Dosage: UNK
  8. MORPHINE SULFATE [Suspect]
     Active Substance: MORPHINE SULFATE
     Indication: Analgesic therapy
     Dosage: UNK
  9. FLAXSEED [Suspect]
     Active Substance: FLAX SEED
     Dosage: UNK
  10. HERBALS\TURMERIC [Suspect]
     Active Substance: HERBALS\TURMERIC
     Dosage: UNK
  11. MINERALS\VITAMINS [Suspect]
     Active Substance: MINERALS\VITAMINS
     Dosage: UNK
  12. FISH OIL [Suspect]
     Active Substance: FISH OIL
     Dosage: UNK
  13. BIOTIN [Suspect]
     Active Substance: BIOTIN
     Dosage: UNK

REACTIONS (1)
  - Chest discomfort [Unknown]
